FAERS Safety Report 5705127-X (Version None)
Quarter: 2008Q2

REPORT INFORMATION
  Report Type: 
  Country: None (occurrence: None)
  Receive Date: 20080414
  Receipt Date: 20080409
  Transmission Date: 20081010
  Serious: Yes (Other)
  Sender: FDA-Public Use
  Company Number: ES-MERCK-0804ESP00022

PATIENT
  Age: 65 Year
  Sex: Female
  Weight: 63 kg

DRUGS (5)
  1. FOSAMAX [Suspect]
     Indication: OSTEOPOROSIS
     Route: 048
     Dates: start: 20071031, end: 20080110
  2. DURAPATITE [Concomitant]
     Route: 048
     Dates: start: 20071031, end: 20080110
  3. PAROXETINE HYDROCHLORIDE [Concomitant]
     Route: 048
  4. ALPRAZOLAM [Concomitant]
     Route: 048
  5. HYDROCHLOROTHIAZIDE AND TELMISARTAN [Concomitant]
     Route: 048

REACTIONS (3)
  - CONJUNCTIVAL HYPERAEMIA [None]
  - FACIAL PAIN [None]
  - PHOTOPHOBIA [None]
